FAERS Safety Report 14384994 (Version 3)
Quarter: 2019Q2

REPORT INFORMATION
  Report Type: Spontaneous
  Country: US (occurrence: US)
  Receive Date: 20180115
  Receipt Date: 20190401
  Transmission Date: 20190711
  Serious: No
  Sender: FDA-Public Use
  Company Number: US-VANDA PHARMACEUTICALS, INC-2017TASUS001773

PATIENT
  Age: 44 Year
  Sex: Female

DRUGS (2)
  1. HETLIOZ [Suspect]
     Active Substance: TASIMELTEON
     Dosage: 20 MG, QHS
     Route: 048
     Dates: start: 20170712
  2. HETLIOZ [Suspect]
     Active Substance: TASIMELTEON
     Indication: CIRCADIAN RHYTHM SLEEP DISORDER
     Dosage: 20 MG, QHS
     Route: 048
     Dates: start: 20170712

REACTIONS (14)
  - Emotional distress [Unknown]
  - Product dose omission [Unknown]
  - Vomiting [Unknown]
  - Abdominal discomfort [Unknown]
  - Eye pain [Unknown]
  - Cough [Unknown]
  - Pyrexia [Unknown]
  - Influenza like illness [Unknown]
  - Drug intolerance [Unknown]
  - Food intolerance [Unknown]
  - Migraine [Unknown]
  - Nasal congestion [Unknown]
  - Upper respiratory tract congestion [Unknown]
  - Nausea [Unknown]
